FAERS Safety Report 24119266 (Version 1)
Quarter: 2024Q3

REPORT INFORMATION
  Report Type: Spontaneous
  Country: JP (occurrence: JP)
  Receive Date: 20240722
  Receipt Date: 20240722
  Transmission Date: 20241016
  Serious: Yes (Other)
  Sender: STRIDES
  Company Number: JP-STRIDES ARCOLAB LIMITED-2024SP008959

PATIENT
  Age: 57 Year
  Sex: Male

DRUGS (4)
  1. PREDNISOLONE [Suspect]
     Active Substance: PREDNISOLONE
     Indication: Glomerulonephritis membranoproliferative
     Dosage: 60 MILLIGRAM, QD (1MG/KG/DAY)
     Route: 048
  2. PREDNISOLONE [Suspect]
     Active Substance: PREDNISOLONE
     Dosage: 40 MILLIGRAM, QD (DOSE REDUCED)
     Route: 048
  3. PREDNISOLONE [Suspect]
     Active Substance: PREDNISOLONE
     Dosage: 20 MILLIGRAM, QD (DOSE GRADUALLY REDUCED)
     Route: 048
  4. PREDNISOLONE [Suspect]
     Active Substance: PREDNISOLONE
     Dosage: UNK (FURTHER TAPERED)
     Route: 048
     Dates: end: 20210104

REACTIONS (4)
  - Pulmonary embolism [Recovered/Resolved]
  - Drug ineffective [Unknown]
  - Condition aggravated [Unknown]
  - Fluid retention [Recovered/Resolved]
